FAERS Safety Report 7477613-6 (Version None)
Quarter: 2011Q2

REPORT INFORMATION
  Report Type: 
  Country: None (occurrence: None)
  Receive Date: 20110513
  Receipt Date: 20110503
  Transmission Date: 20111010
  Serious: Yes (Hospitalization)
  Sender: FDA-Public Use
  Company Number: ES-EISAI INC-E3810-04306-SPO-ES

PATIENT
  Sex: Male

DRUGS (6)
  1. ALLOPURINOL [Concomitant]
     Indication: HYPERURICAEMIA
     Route: 048
     Dates: start: 20070101
  2. DOXAZOSIN MESYLATE [Concomitant]
     Indication: HYPERTENSION
     Route: 048
     Dates: start: 20100101
  3. FLUVASTATIN [Concomitant]
     Route: 048
     Dates: start: 20040101
  4. RABEPRAZOLE SODIUM [Suspect]
     Indication: GASTROINTESTINAL DISORDER THERAPY
     Route: 048
     Dates: start: 20040101
  5. OLMESARTAN MEDOXOMIL [Concomitant]
     Indication: HYPERTENSION
  6. FUROSEMIDE [Concomitant]
     Indication: HYPERTENSION
     Route: 048

REACTIONS (1)
  - PNEUMONIA [None]
